FAERS Safety Report 18296647 (Version 1)
Quarter: 2020Q3

REPORT INFORMATION
  Report Type: Spontaneous
  Country: CN (occurrence: CN)
  Receive Date: 20200922
  Receipt Date: 20200922
  Transmission Date: 20201103
  Serious: Yes (Hospitalization, Other)
  Sender: FDA-Public Use
  Company Number: CN-PFIZER INC-2020363623

PATIENT
  Age: 47 Year
  Sex: Female
  Weight: 66 kg

DRUGS (3)
  1. PHARMORUBICIN [Suspect]
     Active Substance: EPIRUBICIN
     Indication: NEOPLASM MALIGNANT
     Dosage: 140 MG, 1X/DAY
     Route: 041
     Dates: start: 20200904, end: 20200904
  2. DUO PA FEI [Suspect]
     Active Substance: DOCETAXEL
     Indication: NEOPLASM MALIGNANT
     Dosage: 140 MG, 1X/DAY
     Route: 041
     Dates: start: 20200904, end: 20200904
  3. IFOSFAMIDE. [Suspect]
     Active Substance: IFOSFAMIDE
     Indication: NEOPLASM MALIGNANT
     Dosage: 900 MG, 1X/DAY
     Route: 041
     Dates: start: 20200904, end: 20200904

REACTIONS (1)
  - White blood cell count decreased [Recovering/Resolving]

NARRATIVE: CASE EVENT DATE: 20200908
